FAERS Safety Report 10034621 (Version 1)
Quarter: 2014Q1

REPORT INFORMATION
  Report Type: Spontaneous
  Country: GB (occurrence: None)
  Receive Date: 20140321
  Receipt Date: 20140321
  Transmission Date: 20141002
  Serious: Yes (Disabling, Other)
  Sender: FDA-Public Use
  Company Number: AUR-APL-2014-02804

PATIENT
  Age: 48 Year
  Sex: Female
  Weight: 100 kg

DRUGS (9)
  1. SERTRALINE [Suspect]
     Indication: DEPRESSION
     Route: 048
  2. ALMOGRAN (AMLOTRIPTAN MALATE) [Concomitant]
  3. DOMPERIDON (DOMPERIDONE) [Concomitant]
  4. ESOMEPRAZOLE (ESOMEPRAZOLE) [Concomitant]
  5. LEVOTHYROXINE (LEVOTHYROXINE) [Concomitant]
  6. METFORMIN (METFORMIN) [Concomitant]
  7. PARACETAMOL (PARACETAMOL) [Concomitant]
  8. PIZOTIFEN (PIZOTIFEN) [Concomitant]
  9. SERETIDE (SERETIDE) [Concomitant]

REACTIONS (8)
  - Abdominal pain upper [None]
  - Pain [None]
  - Sneezing [None]
  - Rhinorrhoea [None]
  - Nausea [None]
  - Dyspepsia [None]
  - Abdominal pain upper [None]
  - Diarrhoea [None]
